FAERS Safety Report 25287332 (Version 1)
Quarter: 2025Q2

REPORT INFORMATION
  Report Type: Spontaneous
  Country: JP (occurrence: JP)
  Receive Date: 20250509
  Receipt Date: 20250509
  Transmission Date: 20250717
  Serious: Yes (Hospitalization)
  Sender: AJANTA PHARMA USA INC
  Company Number: JP-AJANTA-2025AJA00057

PATIENT
  Age: 32 Year
  Sex: Female

DRUGS (6)
  1. RISPERIDONE [Suspect]
     Active Substance: RISPERIDONE
     Indication: Psychotic symptom
  2. LORLATINIB [Suspect]
     Active Substance: LORLATINIB
     Indication: Non-small cell lung cancer
  3. LORLATINIB [Suspect]
     Active Substance: LORLATINIB
     Indication: Metastases to central nervous system
  4. LORLATINIB [Suspect]
     Active Substance: LORLATINIB
     Indication: Metastases to bone
  5. LORLATINIB [Suspect]
     Active Substance: LORLATINIB
  6. LORLATINIB [Suspect]
     Active Substance: LORLATINIB

REACTIONS (2)
  - Drug ineffective [Unknown]
  - Drug interaction [Unknown]
